FAERS Safety Report 9289401 (Version 1)
Quarter: 2013Q2

REPORT INFORMATION
  Report Type: Report from Study
  Country: US (occurrence: US)
  Receive Date: 20130514
  Receipt Date: 20130514
  Transmission Date: 20140414
  Serious: Yes (Congenital Anomaly)
  Sender: FDA-Public Use
  Company Number: US-UCBSA-085827

PATIENT
  Sex: 0

DRUGS (2)
  1. KEPPRA [Suspect]
     Indication: EPILEPSY
     Route: 064
  2. PHENOBARBITAL [Concomitant]
     Route: 064

REACTIONS (3)
  - Cleft lip [Unknown]
  - Cleft palate [Unknown]
  - Foetal exposure during pregnancy [Recovered/Resolved]
